FAERS Safety Report 21024041 (Version 4)
Quarter: 2022Q3

REPORT INFORMATION
  Report Type: Report from Study
  Country: GR (occurrence: GR)
  Receive Date: 20220629
  Receipt Date: 20220928
  Transmission Date: 20221027
  Serious: Yes (Death, Hospitalization, Other)
  Sender: FDA-Public Use
  Company Number: GR-ABBVIE-22K-066-4449059-00

PATIENT
  Age: 68 Year
  Sex: Male

DRUGS (3)
  1. CARBIDOPA\LEVODOPA [Suspect]
     Active Substance: CARBIDOPA\LEVODOPA
     Indication: Parkinson^s disease
     Dosage: MORNING DOSE5.0ML;CONTINUOUS RATE1.7ML/H;EXTRA DOSE1.5ML(MD NOT ADMINISTERED DUE TO 24HR)
     Route: 050
     Dates: start: 20210518
  2. CARBIDOPA\LEVODOPA [Suspect]
     Active Substance: CARBIDOPA\LEVODOPA
     Dosage: MORNING DOSE: 5.0ML; CONTINUOUS RATE: 1.7ML/H; EXTRA DOSE: 1.5ML (MD NOT ADMINISTERED DUE TO 24HR)
     Route: 050
  3. CARBIDOPA\LEVODOPA [Suspect]
     Active Substance: CARBIDOPA\LEVODOPA
     Route: 050

REACTIONS (8)
  - Death [Fatal]
  - Loss of consciousness [Not Recovered/Not Resolved]
  - Endotracheal intubation [Not Recovered/Not Resolved]
  - Critical illness [Not Recovered/Not Resolved]
  - Malaise [Not Recovered/Not Resolved]
  - Pyrexia [Recovered/Resolved]
  - Device occlusion [Unknown]
  - Device occlusion [Unknown]

NARRATIVE: CASE EVENT DATE: 20220922
